FAERS Safety Report 7987609-3 (Version None)
Quarter: 2011Q4

REPORT INFORMATION
  Report Type: 
  Country: None (occurrence: None)
  Receive Date: 20111216
  Receipt Date: 20111004
  Transmission Date: 20120403
  Serious: Yes (Hospitalization)
  Sender: FDA-Public Use
  Company Number: US-BRISTOL-MYERS SQUIBB COMPANY-12998563

PATIENT
  Age: 59 Year
  Sex: Female
  Weight: 59 kg

DRUGS (8)
  1. INSULIN [Concomitant]
     Indication: DIABETES MELLITUS
  2. PRANDIN [Concomitant]
  3. ABILIFY [Suspect]
     Indication: SCHIZOAFFECTIVE DISORDER
     Dosage: STARTED ON 1996-1997
     Route: 048
  4. PRECOSE [Concomitant]
  5. DEPAKOTE [Concomitant]
  6. ACTOS [Concomitant]
  7. LANTUS [Concomitant]
  8. LIPITOR [Concomitant]

REACTIONS (5)
  - MANIA [None]
  - AGGRESSION [None]
  - PARANOIA [None]
  - HALLUCINATION [None]
  - WEIGHT INCREASED [None]
